FAERS Safety Report 5932998-4 (Version None)
Quarter: 2008Q4

REPORT INFORMATION
  Report Type: 
  Country: None (occurrence: None)
  Receive Date: 20081027
  Receipt Date: 20081027
  Transmission Date: 20090506
  Serious: Yes (Other)
  Sender: FDA-Public Use
  Company Number: None

PATIENT
  Age: 48 Year
  Sex: Female
  Weight: 83.9154 kg

DRUGS (1)
  1. CYMBALTA [Suspect]
     Indication: FIBROMYALGIA
     Dosage: 60 MG DAILY PO
     Route: 048
     Dates: start: 20061116, end: 20081024

REACTIONS (18)
  - ACTIVITIES OF DAILY LIVING IMPAIRED [None]
  - ASTHENIA [None]
  - BEDRIDDEN [None]
  - DISTURBANCE IN ATTENTION [None]
  - DRUG DEPENDENCE [None]
  - DRUG EFFECT DECREASED [None]
  - FATIGUE [None]
  - FEELING ABNORMAL [None]
  - FEELING DRUNK [None]
  - GASTROOESOPHAGEAL REFLUX DISEASE [None]
  - HEADACHE [None]
  - ILL-DEFINED DISORDER [None]
  - IMPAIRED DRIVING ABILITY [None]
  - MENTAL DISORDER [None]
  - MENTAL IMPAIRMENT [None]
  - NAUSEA [None]
  - VERTIGO [None]
  - WITHDRAWAL SYNDROME [None]
